FAERS Safety Report 12122118 (Version 1)
Quarter: 2016Q1

REPORT INFORMATION
  Report Type: Spontaneous
  Country: BR (occurrence: BR)
  Receive Date: 20160226
  Receipt Date: 20160226
  Transmission Date: 20160526
  Serious: Yes (Hospitalization, Other)
  Sender: FDA-Public Use
  Company Number: BR-PFIZER INC-2016023535

PATIENT
  Age: 72 Year
  Sex: Female
  Weight: 64 kg

DRUGS (5)
  1. DOSTINEX [Suspect]
     Active Substance: CABERGOLINE
     Dosage: 0.5 MG, EVERY 20 DAYS
  2. LIPITOR [Concomitant]
     Active Substance: ATORVASTATIN CALCIUM
     Indication: BLOOD TRIGLYCERIDES
     Dosage: ONE TABLET (20 MG), DAILY
     Dates: start: 2015
  3. DOSTINEX [Suspect]
     Active Substance: CABERGOLINE
     Indication: HYPOTHALAMO-PITUITARY DISORDER
     Dosage: 0.5 MG, EVERY 15 DAYS
  4. DOSTINEX [Suspect]
     Active Substance: CABERGOLINE
     Indication: BLOOD PROLACTIN INCREASED
     Dosage: 0.5 MG, EVERY 10 DAYS
     Dates: start: 2012
  5. LYRICA [Concomitant]
     Active Substance: PREGABALIN
     Indication: MIGRAINE
     Dosage: ONE TABLET (150 MG), 2X/DAY
     Dates: start: 2012

REACTIONS (8)
  - Phlebitis [Unknown]
  - Intervertebral disc protrusion [Not Recovered/Not Resolved]
  - Bedridden [Unknown]
  - Swelling [Unknown]
  - Spinal pain [Unknown]
  - Thrombosis [Unknown]
  - Pain [Unknown]
  - Pneumonia [Recovered/Resolved]

NARRATIVE: CASE EVENT DATE: 2015
